FAERS Safety Report 8549075-9 (Version None)
Quarter: 2012Q3

REPORT INFORMATION
  Report Type: 
  Country: None (occurrence: None)
  Receive Date: 20120730
  Receipt Date: 20120726
  Transmission Date: 20120928
  Serious: No
  Sender: FDA-Public Use
  Company Number: US-PFIZER INC-2012182454

PATIENT
  Sex: Female
  Weight: 86.168 kg

DRUGS (3)
  1. ZIPRASIDONE HCL [Suspect]
     Indication: BIPOLAR DISORDER
     Dosage: 40MG IN MORNING AND 80MG AT NIGHT
     Route: 048
     Dates: start: 20090301
  2. ZIPRASIDONE HCL [Suspect]
     Dosage: UNK
     Route: 048
  3. GEODON [Suspect]
     Indication: BIPOLAR DISORDER
     Dosage: UNK
     Route: 048
     Dates: end: 20090301

REACTIONS (1)
  - TREMOR [None]
